FAERS Safety Report 9739239 (Version 1)
Quarter: 2013Q4

REPORT INFORMATION
  Report Type: Spontaneous
  Country: US (occurrence: US)
  Receive Date: 20131209
  Receipt Date: 20131209
  Transmission Date: 20140711
  Serious: No
  Sender: FDA-Public Use
  Company Number: US-TEVA-445656USA

PATIENT
  Age: 19 Year
  Sex: Female
  Weight: 68.1 kg

DRUGS (4)
  1. PARAGARD 380A [Suspect]
     Indication: CONTRACEPTION
     Route: 015
     Dates: start: 20131023, end: 20131111
  2. ALLEGRA [Concomitant]
     Indication: HYPERSENSITIVITY
  3. ACCOLATE [Concomitant]
     Indication: ASTHMA
  4. VITAMIN D [Concomitant]

REACTIONS (2)
  - Dysmenorrhoea [Recovered/Resolved]
  - Device expulsion [Recovered/Resolved]
